FAERS Safety Report 5789319-X (Version None)
Quarter: 2008Q2

REPORT INFORMATION
  Report Type: 
  Country: None (occurrence: None)
  Receive Date: 20080625
  Receipt Date: 20080625
  Transmission Date: 20081010
  Serious: Yes (Life-Threatening, Hospitalization, Other)
  Sender: FDA-Public Use
  Company Number: None

PATIENT
  Age: 30 Year
  Sex: Female
  Weight: 72.5755 kg

DRUGS (2)
  1. CYMBALTA [Suspect]
     Indication: POSTPARTUM DEPRESSION
     Dosage: 60 MG DAILY PO
     Route: 048
     Dates: start: 20050501, end: 20071201
  2. EFFEXOR [Suspect]
     Indication: POSTPARTUM DEPRESSION
     Dosage: 300 MG DAILY PO
     Route: 048
     Dates: start: 20041101, end: 20080501

REACTIONS (4)
  - DRUG INEFFECTIVE [None]
  - MYALGIA [None]
  - SKIN DISORDER [None]
  - URTICARIA [None]
